FAERS Safety Report 6995079-7 (Version None)
Quarter: 2010Q3

REPORT INFORMATION
  Report Type: 
  Country: None (occurrence: None)
  Receive Date: 20100917
  Receipt Date: 20091002
  Transmission Date: 20110219
  Serious: Yes (Other)
  Sender: FDA-Public Use
  Company Number: HQWYE820304AUG04

PATIENT
  Sex: Female
  Weight: 63.56 kg

DRUGS (5)
  1. PREMPRO [Suspect]
     Indication: MENOPAUSE
     Dosage: 0.625MG/2.5MG
     Dates: start: 19970101, end: 19980101
  2. PREMARIN [Suspect]
     Dosage: 0.625MG
     Dates: start: 19960101
  3. PROVERA [Suspect]
     Dosage: 2.5MG
     Dates: start: 19930101, end: 19980101
  4. ESTRATEST [Suspect]
     Dosage: UNKNOWN
     Dates: start: 19970101, end: 19990101
  5. ESTRACE [Suspect]
     Dosage: UNKNOWN
     Dates: start: 19930101, end: 19960101

REACTIONS (1)
  - BREAST CANCER [None]
